FAERS Safety Report 14251949 (Version 1)
Quarter: 2017Q4

REPORT INFORMATION
  Report Type: Spontaneous
  Country: US (occurrence: US)
  Receive Date: 20171205
  Receipt Date: 20171205
  Transmission Date: 20180321
  Serious: No
  Sender: FDA-Public Use
  Company Number: US-MYLANLABS-2017M1073075

PATIENT
  Age: 19 Month
  Sex: Male

DRUGS (1)
  1. DEXAMETHASONE SODIUM PHOSPHATE INJECTION USP 4 MG/ML [Suspect]
     Active Substance: DEXAMETHASONE
     Indication: RESPIRATORY SYMPTOM
     Dosage: 6 MG, UNK
     Route: 048

REACTIONS (2)
  - No adverse event [Unknown]
  - Incorrect route of drug administration [Unknown]
